FAERS Safety Report 9738609 (Version 2)
Quarter: 2013Q4

REPORT INFORMATION
  Report Type: Spontaneous
  Country: FR (occurrence: FR)
  Receive Date: 20131209
  Receipt Date: 20131209
  Transmission Date: 20140711
  Serious: Yes (Hospitalization)
  Sender: FDA-Public Use
  Company Number: FR-ROCHE-1313432

PATIENT
  Age: 9 Month
  Sex: Female
  Weight: 8 kg

DRUGS (13)
  1. CELLCEPT [Suspect]
     Indication: LIVER TRANSPLANT
     Route: 065
     Dates: start: 20131105, end: 20131114
  2. PROGRAF [Concomitant]
  3. VANCOMYCINE [Concomitant]
  4. FLAGYL [Concomitant]
  5. IMUREL [Concomitant]
  6. BACTRIM [Concomitant]
  7. DAPTOMYCIN [Concomitant]
  8. FOSFOMYCINE [Concomitant]
  9. CIFLOX (FRANCE) [Concomitant]
  10. MERONEM [Concomitant]
  11. FORTUM [Concomitant]
  12. MYCOSTATINE [Concomitant]
  13. ZOVIRAX [Concomitant]

REACTIONS (1)
  - Enterocolitis [Recovered/Resolved]
